FAERS Safety Report 17195135 (Version 1)
Quarter: 2019Q4

REPORT INFORMATION
  Report Type: Spontaneous
  Country: SE (occurrence: SE)
  Receive Date: 20191224
  Receipt Date: 20191224
  Transmission Date: 20200122
  Serious: Yes (Hospitalization)
  Sender: FDA-Public Use
  Company Number: SE-MICRO LABS LIMITED-ML2019-03717

PATIENT
  Age: 68 Year
  Sex: Male

DRUGS (10)
  1. CLOPIDOGREL [Suspect]
     Active Substance: CLOPIDOGREL BISULFATE
     Route: 048
     Dates: start: 20180415, end: 20180415
  2. ZOPICLONE [Suspect]
     Active Substance: ZOPICLONE
     Route: 048
     Dates: start: 20180415, end: 20180415
  3. BEVIPLEX [CALCIUM PANTOTHENATE;CYANOCOBALAMIN;NICOTINAMIDE;PYRIDOXINE [Suspect]
     Active Substance: CALCIUM PANTOTHENATE\CYANOCOBALAMIN\NIACINAMIDE\PYRIDOXINE HYDROCHLORIDE\RIBOFLAVIN\THIAMINE HYDROCHLORIDE
     Route: 048
     Dates: start: 20180415, end: 20180415
  4. NITRAZEPAM [Suspect]
     Active Substance: NITRAZEPAM
     Route: 048
     Dates: start: 20180415, end: 20180415
  5. SIMVASTATIN. [Suspect]
     Active Substance: SIMVASTATIN
     Route: 048
     Dates: start: 20180415, end: 20180415
  6. BEHEPAN [CYANOCOBALAMIN] [Suspect]
     Active Substance: CYANOCOBALAMIN
     Route: 048
     Dates: start: 20180415, end: 20180415
  7. BISOPROLOL [Suspect]
     Active Substance: BISOPROLOL
     Route: 048
     Dates: start: 20180415, end: 20180415
  8. PROPAVAN [Suspect]
     Active Substance: PROPIOMAZINE
     Route: 048
     Dates: start: 20180415, end: 20180415
  9. LOSARTAN. [Suspect]
     Active Substance: LOSARTAN
     Route: 048
     Dates: start: 20180415, end: 20180415
  10. OMEPRAZOLE. [Suspect]
     Active Substance: OMEPRAZOLE
     Route: 048
     Dates: start: 20180415, end: 20180415

REACTIONS (3)
  - Intentional self-injury [Unknown]
  - Intentional overdose [Unknown]
  - Fatigue [Unknown]

NARRATIVE: CASE EVENT DATE: 20180415
